FAERS Safety Report 13172070 (Version 1)
Quarter: 2017Q1

REPORT INFORMATION
  Report Type: Spontaneous
  Country: US (occurrence: US)
  Receive Date: 20170130
  Receipt Date: 20170130
  Transmission Date: 20170428
  Serious: Yes (Disabling)
  Sender: FDA-Public Use
  Company Number: None

PATIENT
  Age: 57 Year
  Sex: Female

DRUGS (3)
  1. MULTIVITAMIN [Concomitant]
     Active Substance: VITAMINS
  2. ALDARA [Suspect]
     Active Substance: IMIQUIMOD
     Indication: HYPERKERATOSIS
     Dosage: 1 PACKET (THIN LAYER ACROSS TREATMENT AREA) MWF NIGHTLY THEN DAILY ?TOPICAL APPLICATION
     Route: 061
     Dates: start: 20160129, end: 20160609
  3. FIORICET [Concomitant]
     Active Substance: ACETAMINOPHEN\BUTALBITAL\CAFFEINE

REACTIONS (7)
  - Influenza like illness [None]
  - Retinopathy [None]
  - Optic neuritis [None]
  - Scab [None]
  - Visual field defect [None]
  - Incorrect dose administered [None]
  - Blister [None]

NARRATIVE: CASE EVENT DATE: 201606
